FAERS Safety Report 22342855 (Version 2)
Quarter: 2024Q2

REPORT INFORMATION
  Report Type: Spontaneous
  Country: DE (occurrence: DE)
  Receive Date: 20230519
  Receipt Date: 20240522
  Transmission Date: 20240716
  Serious: Yes (Hospitalization, Other)
  Sender: FDA-Public Use
  Company Number: DE-ALKEM LABORATORIES LIMITED-DE-ALKEM-2023-04815

PATIENT
  Age: 6 Year
  Sex: Male
  Weight: 19 kg

DRUGS (18)
  1. CLOBAZAM [Suspect]
     Active Substance: CLOBAZAM
     Indication: Generalised tonic-clonic seizure
     Dosage: 0.06 MILLIGRAM/KILOGRAM, QD (EVERY 1 DAY)
     Route: 065
  2. CLOBAZAM [Suspect]
     Active Substance: CLOBAZAM
     Dosage: 0.11 MILLIGRAM/KILOGRAM, QD (EVERY 1 DAY)
     Route: 042
  3. LACOSAMIDE [Suspect]
     Active Substance: LACOSAMIDE
     Indication: Generalised tonic-clonic seizure
     Dosage: 2 MILLIGRAM/KILOGRAM, QD (EVERY 1 DAY)
     Route: 042
  4. LACOSAMIDE [Suspect]
     Active Substance: LACOSAMIDE
     Dosage: 2 MILLIGRAM/KILOGRAM, QD
     Route: 065
  5. LEVETIRACETAM [Suspect]
     Active Substance: LEVETIRACETAM
     Indication: Generalised tonic-clonic seizure
     Dosage: 40 MILLIGRAM/KILOGRAM, QD (EVERY 1 DAY)
     Route: 042
  6. LEVETIRACETAM [Suspect]
     Active Substance: LEVETIRACETAM
     Dosage: 60 MILLIGRAM/KILOGRAM
     Route: 042
  7. LEVETIRACETAM [Suspect]
     Active Substance: LEVETIRACETAM
     Dosage: 60 MILLIGRAM/KILOGRAM, QD (EVERY 1 DAY)
     Route: 042
  8. LEVETIRACETAM [Suspect]
     Active Substance: LEVETIRACETAM
     Dosage: 60 MILLIGRAM/KILOGRAM, QD (EVERY 1 DAY)
     Route: 065
  9. CLONAZEPAM [Suspect]
     Active Substance: CLONAZEPAM
     Indication: Generalised tonic-clonic seizure
     Dosage: 0.06 MILLIGRAM/KILOGRAM
     Route: 042
  10. CLONAZEPAM [Suspect]
     Active Substance: CLONAZEPAM
     Dosage: 0.06 MILLIGRAM/KILOGRAM/ DAY, QD
     Route: 065
  11. FOSPHENYTOIN [Suspect]
     Active Substance: FOSPHENYTOIN
     Indication: Generalised tonic-clonic seizure
     Dosage: UNK
     Route: 042
  12. FOSPHENYTOIN [Suspect]
     Active Substance: FOSPHENYTOIN
     Dosage: 0.06 MILLIGRAM/KILOGRAM, QD
     Route: 065
  13. LORAZEPAM [Suspect]
     Active Substance: LORAZEPAM
     Indication: Generalised tonic-clonic seizure
     Dosage: 0.1 MILLIGRAM/KILOGRAM
     Route: 042
  14. MIDAZOLAM [Suspect]
     Active Substance: MIDAZOLAM
     Indication: Generalised tonic-clonic seizure
     Dosage: 5 MILLIGRAM
     Route: 048
  15. OXCARBAZEPINE [Suspect]
     Active Substance: OXCARBAZEPINE
     Indication: Generalised tonic-clonic seizure
     Dosage: 0.25 MILLIGRAM/KILOGRAM, QD (EVERY 1 DAY)
     Route: 065
  16. PHENOBARBITAL [Suspect]
     Active Substance: PHENOBARBITAL
     Indication: Generalised tonic-clonic seizure
     Dosage: 5 MILLIGRAM/KILOGRAM, QD
     Route: 048
  17. PHENOBARBITAL [Suspect]
     Active Substance: PHENOBARBITAL
     Dosage: 10 MILLIGRAM/KILOGRAM, QD (EVERY 1 DAY)
     Route: 042
  18. VALPROIC ACID [Suspect]
     Active Substance: VALPROIC ACID
     Indication: Generalised tonic-clonic seizure
     Dosage: 10 MILLIGRAM/KILOGRAM, QD (EVERY 1 DAY)
     Route: 048

REACTIONS (9)
  - Generalised tonic-clonic seizure [Recovered/Resolved]
  - Status epilepticus [Unknown]
  - Oxygen saturation decreased [Recovered/Resolved]
  - Disease progression [Unknown]
  - Drug ineffective [Unknown]
  - Bradypnoea [Unknown]
  - Hepatic enzyme increased [Unknown]
  - Muscle spasms [Unknown]
  - Rash [Unknown]
